FAERS Safety Report 10886513 (Version 1)
Quarter: 2015Q1

REPORT INFORMATION
  Report Type: Spontaneous
  Country: US (occurrence: US)
  Receive Date: 20150304
  Receipt Date: 20150304
  Transmission Date: 20150721
  Serious: Yes (Death, Other)
  Sender: FDA-Public Use
  Company Number: US-GLAXOSMITHKLINE-US2015GSK028509

PATIENT
  Age: 50 Year
  Sex: Female

DRUGS (1)
  1. FLOLAN [Suspect]
     Active Substance: EPOPROSTENOL SODIUM
     Indication: COR PULMONALE CHRONIC
     Dosage: 88.2 NG/KG/MIN (CONCENTRATION 90,000 NG/ML, PUMP RATE 89 ML/DAY, VIAL STRENGTH 1.5 MG), CO
     Route: 042
     Dates: start: 20031107

REACTIONS (1)
  - Death [Fatal]

NARRATIVE: CASE EVENT DATE: 20150223
